FAERS Safety Report 23729783 (Version 1)
Quarter: 2024Q2

REPORT INFORMATION
  Report Type: Spontaneous
  Country: CN (occurrence: CN)
  Receive Date: 20240411
  Receipt Date: 20240411
  Transmission Date: 20240716
  Serious: Yes (Other)
  Sender: FDA-Public Use
  Company Number: CN-ABBVIE-5705534

PATIENT
  Age: 67 Year
  Sex: Male
  Weight: 59 kg

DRUGS (13)
  1. FLUOROMETHOLONE [Suspect]
     Active Substance: FLUOROMETHOLONE
     Indication: Anti-neutrophil cytoplasmic antibody positive vasculitis
     Route: 047
     Dates: start: 20240210, end: 20240310
  2. FLUOROMETHOLONE [Suspect]
     Active Substance: FLUOROMETHOLONE
     Indication: Vasculitis
     Route: 047
     Dates: start: 20240322
  3. FLUOROMETHOLONE [Suspect]
     Active Substance: FLUOROMETHOLONE
     Route: 047
     Dates: start: 20240317, end: 20240318
  4. LEVOTHYROXINE SODIUM [Concomitant]
     Active Substance: LEVOTHYROXINE SODIUM
     Indication: Hypothyroidism
     Dosage: 25 MICROGRAM
     Route: 048
     Dates: start: 20230201
  5. METOPROLOL [Concomitant]
     Active Substance: METOPROLOL
     Indication: Product used for unknown indication
     Dosage: 47.5 MILLIGRAM
     Route: 048
     Dates: start: 20230722
  6. CALCITRIOL [Concomitant]
     Active Substance: CALCITRIOL
     Indication: Product used for unknown indication
     Dosage: 0.5 MICROGRAM
     Route: 048
     Dates: start: 20230722
  7. Sacubitril valsartan [Concomitant]
     Indication: Product used for unknown indication
     Dosage: 100 MILLIGRAM
     Route: 048
     Dates: start: 20230722
  8. CALCIUM CARBONATE\CHOLECALCIFEROL [Concomitant]
     Active Substance: CALCIUM CARBONATE\CHOLECALCIFEROL
     Indication: Product used for unknown indication
     Dosage: 600 MILLIGRAM
     Route: 048
     Dates: start: 20230722
  9. PREDNISONE [Concomitant]
     Active Substance: PREDNISONE
     Indication: Anti-neutrophil cytoplasmic antibody positive vasculitis
     Dosage: 55 MILLIGRAM
     Route: 048
     Dates: start: 20230722
  10. POTASSIUM CHLORIDE [Concomitant]
     Active Substance: POTASSIUM CHLORIDE
     Indication: Product used for unknown indication
     Dosage: TIME INTERVAL: 0.33333333 DAYS: 1.4 GRAM
     Route: 048
     Dates: start: 20230722
  11. METHYLCOBALAMIN [Concomitant]
     Active Substance: METHYLCOBALAMIN
     Indication: Product used for unknown indication
     Dosage: TIME INTERVAL: 0.33333333 DAYS: 1.5 MILLIGRAM
     Route: 048
     Dates: start: 20230722
  12. MYCOPHENOLATE MOFETIL [Concomitant]
     Active Substance: MYCOPHENOLATE MOFETIL
     Indication: Anti-neutrophil cytoplasmic antibody positive vasculitis
     Dosage: 1 GRAM
     Route: 048
     Dates: start: 20230722
  13. PANTOPRAZOLE SODIUM [Concomitant]
     Active Substance: PANTOPRAZOLE SODIUM
     Indication: Product used for unknown indication
     Dosage: 40 MILLIGRAM?ENTERIC-COATED TABLETS
     Route: 048
     Dates: start: 20230722

REACTIONS (4)
  - Blindness unilateral [Not Recovered/Not Resolved]
  - Visual impairment [Unknown]
  - Vision blurred [Not Recovered/Not Resolved]
  - Diplopia [Unknown]

NARRATIVE: CASE EVENT DATE: 20240101
